FAERS Safety Report 19695154 (Version 2)
Quarter: 2021Q3

REPORT INFORMATION
  Report Type: Spontaneous
  Country: US (occurrence: US)
  Receive Date: 20210812
  Receipt Date: 20210922
  Transmission Date: 20211014
  Serious: Yes (Hospitalization, Other)
  Sender: FDA-Public Use
  Company Number: US-ENDO PHARMACEUTICALS INC-2020-003954

PATIENT
  Age: 29 Year
  Sex: Male

DRUGS (16)
  1. HEROIN [Suspect]
     Active Substance: DIAMORPHINE
     Indication: PRODUCT USED FOR UNKNOWN INDICATION
     Dosage: 2?4 G, UNKNOWN
     Route: 042
     Dates: start: 2015
  2. BENZODIAZEPINE RELATED DRUGS [Suspect]
     Active Substance: BENZODIAZEPINE
     Indication: PRODUCT USED FOR UNKNOWN INDICATION
     Dosage: UNK UNKNOWN, UNKNOWN
     Route: 065
     Dates: start: 2015
  3. PERCOCET [Suspect]
     Active Substance: ACETAMINOPHEN\OXYCODONE HYDROCHLORIDE
     Indication: PAIN
     Dosage: 5?325 MG QID AS NEEDED
     Route: 065
     Dates: start: 20080605
  4. TOBACCO [Concomitant]
     Active Substance: TOBACCO LEAF
     Indication: PRODUCT USED FOR UNKNOWN INDICATION
     Dosage: 1/2 PACK DAILY
     Route: 065
     Dates: start: 2006
  5. FLEXERIL [Concomitant]
     Active Substance: CYCLOBENZAPRINE HYDROCHLORIDE
     Indication: MUSCLE RELAXANT THERAPY
     Dosage: 1 DF, TID
     Route: 065
     Dates: start: 20080721
  6. PERCOCET [Suspect]
     Active Substance: ACETAMINOPHEN\OXYCODONE HYDROCHLORIDE
     Dosage: 200 MG, DAILY
     Route: 065
     Dates: start: 2015
  7. PERCOCET [Suspect]
     Active Substance: ACETAMINOPHEN\OXYCODONE HYDROCHLORIDE
     Dosage: 5?15 PILLS OF 30 MG EACH, DAILY
     Route: 048
     Dates: start: 2016
  8. CELEBREX [Concomitant]
     Active Substance: CELECOXIB
     Indication: PRODUCT USED FOR UNKNOWN INDICATION
     Dosage: 1 DF, BID
     Route: 065
  9. MARIJUANA [Concomitant]
     Active Substance: CANNABIS SATIVA SUBSP. INDICA TOP
     Indication: PRODUCT USED FOR UNKNOWN INDICATION
     Dosage: UNK UNKNOWN, UNKNOWN
     Route: 065
     Dates: start: 2004
  10. PERCOCET [Suspect]
     Active Substance: ACETAMINOPHEN\OXYCODONE HYDROCHLORIDE
     Dosage: 5?325 MG, 4 TIMES A DAY AS NEEDED
     Route: 065
     Dates: start: 20080721
  11. OXYCODONE/APAP                     /00867901/ [Suspect]
     Active Substance: ACETAMINOPHEN\OXYCODONE HYDROCHLORIDE
     Dosage: 1 DF, TID
     Route: 048
     Dates: start: 2009
  12. OXYCODONE/APAP                     /00867901/ [Suspect]
     Active Substance: ACETAMINOPHEN\OXYCODONE HYDROCHLORIDE
     Dosage: 1/2 TO 1 DF, TID
     Route: 048
     Dates: start: 2009
  13. IBUPROFEN. [Concomitant]
     Active Substance: IBUPROFEN
     Indication: ARTHRITIS
     Dosage: 1 DF, EVERY 6 HRS AS NEEDED
     Route: 065
     Dates: start: 20080721
  14. OXYCODONE/APAP                     /00867901/ [Suspect]
     Active Substance: ACETAMINOPHEN\OXYCODONE HYDROCHLORIDE
     Indication: PAIN
     Dosage: 10/325 MG, UNKNOWN
     Route: 048
     Dates: start: 2009
  15. ALPRAZOLAM. [Concomitant]
     Active Substance: ALPRAZOLAM
     Indication: PRODUCT USED FOR UNKNOWN INDICATION
     Dosage: 0.5 MG, TID FOR 1 WEEK TAPERING DOSE
     Route: 048
  16. MARINOL [Concomitant]
     Active Substance: DRONABINOL
     Indication: PRODUCT USED FOR UNKNOWN INDICATION
     Dosage: UNK UNKNOWN, UNKNOWN
     Route: 065

REACTIONS (15)
  - Dependence [Unknown]
  - Overdose [Recovered/Resolved]
  - Weight decreased [Unknown]
  - Decreased appetite [Unknown]
  - Joint dislocation [Unknown]
  - Fall [Unknown]
  - Psychiatric symptom [Not Recovered/Not Resolved]
  - Seizure [Recovered/Resolved]
  - Scar [Not Recovered/Not Resolved]
  - Stress [Unknown]
  - Depression [Not Recovered/Not Resolved]
  - Nervousness [Not Recovered/Not Resolved]
  - Hepatitis C [Not Recovered/Not Resolved]
  - Coma [Unknown]
  - Anxiety [Not Recovered/Not Resolved]

NARRATIVE: CASE EVENT DATE: 2008
